FAERS Safety Report 8838467 (Version 2)
Quarter: 2012Q4

REPORT INFORMATION
  Report Type: Report from Study
  Country: GB (occurrence: GB)
  Receive Date: 20121012
  Receipt Date: 20121120
  Transmission Date: 20130627
  Serious: Yes (Other)
  Sender: FDA-Public Use
  Company Number: GB-VERTEX PHARMACEUTICAL INC.-2012-021328

PATIENT
  Age: 66 Year
  Sex: Male

DRUGS (3)
  1. VX-950 (TELAPREVIR) [Suspect]
     Indication: HEPATITIS C
     Dosage: 750 mg, tid
     Route: 048
     Dates: start: 20120717
  2. PEGYLATED INTERFERON [Suspect]
     Indication: HEPATITIS C
     Dosage: Dosage Form: Injection
     Route: 058
     Dates: start: 20120717
  3. RIBAVIRIN [Suspect]
     Indication: HEPATITIS C
     Dosage: Dosage Form: Unspecified
     Route: 048
     Dates: start: 20120717

REACTIONS (3)
  - Dyspnoea [Not Recovered/Not Resolved]
  - Joint swelling [Not Recovered/Not Resolved]
  - Oedema peripheral [Not Recovered/Not Resolved]
